FAERS Safety Report 9144881 (Version 2)
Quarter: 2013Q2

REPORT INFORMATION
  Report Type: Spontaneous
  Country: FR (occurrence: FR)
  Receive Date: 20130307
  Receipt Date: 20130410
  Transmission Date: 20140414
  Serious: Yes (Hospitalization)
  Sender: FDA-Public Use
  Company Number: FR-GE HEALTHCARE MEDICAL DIAGNOSTICS-VISP-NO-1303S-0438

PATIENT
  Age: 63 Year
  Sex: Male

DRUGS (4)
  1. VISIPAQUE [Suspect]
     Indication: LIGAMENT SPRAIN
     Route: 014
     Dates: start: 20130222, end: 20130222
  2. VISIPAQUE [Suspect]
     Indication: DIAGNOSTIC PROCEDURE
  3. BETADINE [Concomitant]
  4. XYLOCAIN [Concomitant]

REACTIONS (1)
  - Angioedema [Recovered/Resolved]
